FAERS Safety Report 5895902-3 (Version None)
Quarter: 2008Q3

REPORT INFORMATION
  Report Type: 
  Country: None (occurrence: None)
  Receive Date: 20080924
  Receipt Date: 20080917
  Transmission Date: 20090109
  Serious: Yes (Hospitalization, Other)
  Sender: FDA-Public Use
  Company Number: US-ELI_LILLY_AND_COMPANY-US200809003805

PATIENT
  Sex: Female

DRUGS (2)
  1. HUMAN INSULIN (RDNA ORIGIN) [Suspect]
     Dosage: UNK, UNK
  2. NOVOLIN [Concomitant]

REACTIONS (18)
  - AMNESIA [None]
  - DIZZINESS [None]
  - DYSSTASIA [None]
  - EUPHORIC MOOD [None]
  - GAIT DISTURBANCE [None]
  - HOSPITALISATION [None]
  - HYPERTENSION [None]
  - INSOMNIA [None]
  - IRRITABILITY [None]
  - LOSS OF CONSCIOUSNESS [None]
  - MALAISE [None]
  - MEMORY IMPAIRMENT [None]
  - MUSCLE SPASMS [None]
  - OEDEMA PERIPHERAL [None]
  - PAIN [None]
  - PAIN IN EXTREMITY [None]
  - STRESS [None]
  - VOMITING [None]
